FAERS Safety Report 11862932 (Version 1)
Quarter: 2015Q4

REPORT INFORMATION
  Report Type: Spontaneous
  Country: US (occurrence: US)
  Receive Date: 20151223
  Receipt Date: 20151223
  Transmission Date: 20160305
  Serious: Yes (Hospitalization)
  Sender: FDA-Public Use
  Company Number: US-BEH-2015057012

PATIENT
  Sex: Female
  Weight: 27 kg

DRUGS (12)
  1. ARNICA [Concomitant]
     Active Substance: ARNICA MONTANA FLOWER
  2. PROBIOTIC COMPLEX [Concomitant]
  3. ADVIL [Concomitant]
     Active Substance: IBUPROFEN
  4. DIPHENHYDRAMINE. [Concomitant]
     Active Substance: DIPHENHYDRAMINE
  5. LIDOCAINE/PRILOCAINE [Concomitant]
  6. MAGNESIUM [Concomitant]
     Active Substance: MAGNESIUM
  7. MULTIVITAMINS [Concomitant]
     Active Substance: VITAMINS
  8. EPIPEN JR [Concomitant]
     Active Substance: EPINEPHRINE
  9. ALLEGRA ALLERGY [Concomitant]
     Active Substance: FEXOFENADINE HYDROCHLORIDE
  10. HIZENTRA [Suspect]
     Active Substance: HUMAN IMMUNOGLOBULIN G
     Indication: IMMUNODEFICIENCY COMMON VARIABLE
     Route: 058
  11. LIDOCAINE. [Concomitant]
     Active Substance: LIDOCAINE
  12. LMX [Concomitant]
     Active Substance: LIDOCAINE

REACTIONS (1)
  - Hospitalisation [Unknown]
